FAERS Safety Report 4889396-4 (Version None)
Quarter: 2006Q1

REPORT INFORMATION
  Report Type: 
  Country: None (occurrence: None)
  Receive Date: 20060120
  Receipt Date: 20060109
  Transmission Date: 20060701
  Serious: Yes (Life-Threatening, Other)
  Sender: FDA-Public Use
  Company Number: 2005168457

PATIENT
  Age: 58 Year
  Sex: Female

DRUGS (27)
  1. SERTRALINE [Suspect]
     Indication: DEPRESSION
     Dosage: 25 MG
  2. SERTRALINE [Suspect]
     Indication: PSYCHOMOTOR RETARDATION
     Dosage: 25 MG
  3. VERAPAMIL HYDROCHLORIDE [Suspect]
     Indication: SUPRAVENTRICULAR TACHYCARDIA
     Dosage: 40 MG, ORAL
     Route: 048
  4. METHYLPHENIDATE HCL [Suspect]
     Indication: DEPRESSION
     Dosage: 5 MG
  5. METHYLPHENIDATE HCL [Suspect]
     Indication: PSYCHOMOTOR RETARDATION
     Dosage: 5 MG
  6. DOPAMINE HCL [Suspect]
     Indication: ILL-DEFINED DISORDER
     Dosage: 2.5 MCG/KG/MINUTE
  7. TACROLIMUS (TACROLIMUS) [Concomitant]
  8. CYCLOPHOSPHAMIDE [Concomitant]
  9. PREDNISONE [Concomitant]
  10. VALGANCICLOVIR (VALGANCICLOVIR) [Concomitant]
  11. ERYTHROPOIETIN (ERYTHROPOIETIN) [Concomitant]
  12. PRAVASTATIN [Concomitant]
  13. ASPIRIN [Concomitant]
  14. CALCIUM CITRATE (CALCIUM CITRATE) [Concomitant]
  15. PANTOPRAZOLE SODIUM [Concomitant]
  16. DOCUSATE SODIUM (DOCUSATE SODIUM) [Concomitant]
  17. AMPHOTERICIN B [Concomitant]
  18. TRIMETHOPRIM [Concomitant]
  19. FUROSEMIDE [Concomitant]
  20. LEVOFLOXACIN [Concomitant]
  21. ISOPHANE INSULIN (ISOPHANE INSULIN) [Concomitant]
  22. VANCOMYCIN [Concomitant]
  23. NYSTATIN [Concomitant]
  24. HEPARIN [Concomitant]
  25. FERROUS GLUCONATE (FERROUS GLUCONATE) [Concomitant]
  26. MULTIVITAMIN [Concomitant]
  27. SULFAMETHOXAZOLE [Concomitant]

REACTIONS (7)
  - ATRIOVENTRICULAR BLOCK SECOND DEGREE [None]
  - CARDIAC ARREST [None]
  - COMPLICATIONS OF TRANSPLANTED HEART [None]
  - DEPRESSION [None]
  - HYPOTENSION [None]
  - PSYCHOMOTOR RETARDATION [None]
  - SUPRAVENTRICULAR TACHYCARDIA [None]
